FAERS Safety Report 16272415 (Version 4)
Quarter: 2019Q4

REPORT INFORMATION
  Report Type: Spontaneous
  Country: US (occurrence: US)
  Receive Date: 20190503
  Receipt Date: 20191014
  Transmission Date: 20200122
  Serious: Yes (Other)
  Sender: FDA-Public Use
  Company Number: US-ASTRAZENECA-2018SF65092

PATIENT
  Sex: Female
  Weight: 65.8 kg

DRUGS (30)
  1. NEXIUM [Suspect]
     Active Substance: ESOMEPRAZOLE MAGNESIUM
     Indication: HIATUS HERNIA
     Dosage: 40 MG, UNK
     Route: 048
     Dates: start: 2001, end: 2014
  2. PRILOSEC [Suspect]
     Active Substance: OMEPRAZOLE MAGNESIUM
     Indication: HIATUS HERNIA
     Dosage: GENERIC
     Route: 065
  3. PRILOSEC OTC [Suspect]
     Active Substance: OMEPRAZOLE MAGNESIUM
     Route: 048
  4. PREVACID 24 HR [Suspect]
     Active Substance: LANSOPRAZOLE
     Route: 065
  5. GUANFACINE. [Concomitant]
     Active Substance: GUANFACINE
  6. HCTZ [Concomitant]
     Active Substance: HYDROCHLOROTHIAZIDE
  7. CLONIDINE. [Concomitant]
     Active Substance: CLONIDINE
  8. METOPROLOL. [Concomitant]
     Active Substance: METOPROLOL
  9. COGENTIN [Concomitant]
     Active Substance: BENZTROPINE MESYLATE
  10. PREVACID [Suspect]
     Active Substance: LANSOPRAZOLE
     Indication: HIATUS HERNIA
     Dosage: 20 MG, UNK
     Route: 065
     Dates: start: 2010
  11. MUPIROCIN. [Concomitant]
     Active Substance: MUPIROCIN
  12. MIRTAZAPINE. [Concomitant]
     Active Substance: MIRTAZAPINE
  13. ZANTAC [Concomitant]
     Active Substance: RANITIDINE HYDROCHLORIDE
  14. NEXIUM [Suspect]
     Active Substance: ESOMEPRAZOLE MAGNESIUM
     Indication: HIATUS HERNIA
     Route: 065
     Dates: start: 20150204
  15. CLONAZEPAM. [Concomitant]
     Active Substance: CLONAZEPAM
  16. NEXIUM [Suspect]
     Active Substance: ESOMEPRAZOLE MAGNESIUM
     Indication: HIATUS HERNIA
     Dosage: VARIOUS YEARS AND DATES
     Route: 048
  17. PRILOSEC [Suspect]
     Active Substance: OMEPRAZOLE MAGNESIUM
     Indication: HIATUS HERNIA
     Dosage: 20 MG, UNK
     Route: 048
     Dates: start: 2010
  18. AMLODIPINE [Concomitant]
     Active Substance: AMLODIPINE BESYLATE
  19. NEXIUM 24HR [Suspect]
     Active Substance: ESOMEPRAZOLE MAGNESIUM
     Route: 048
  20. PANTOPRAZOLE [Concomitant]
     Active Substance: PANTOPRAZOLE
  21. ACETAMINOPHEN. [Concomitant]
     Active Substance: ACETAMINOPHEN
  22. MECLIZINE [Concomitant]
     Active Substance: MECLIZINE HYDROCHLORIDE
  23. PREVACID [Suspect]
     Active Substance: LANSOPRAZOLE
     Indication: HIATUS HERNIA
     Dosage: GENERIC
     Route: 065
  24. PROTONIX [Suspect]
     Active Substance: PANTOPRAZOLE SODIUM
     Indication: HIATUS HERNIA
     Dosage: 20 MG, UNK
     Route: 065
     Dates: start: 2010
  25. TRAMADOL. [Concomitant]
     Active Substance: TRAMADOL
  26. Z-PACK [Concomitant]
     Active Substance: AZITHROMYCIN DIHYDRATE
  27. CLONAZEPAM. [Concomitant]
     Active Substance: CLONAZEPAM
  28. MIRALAX [Concomitant]
     Active Substance: POLYETHYLENE GLYCOL 3350
  29. TENEX [Concomitant]
     Active Substance: GUANFACINE HYDROCHLORIDE
  30. NEURONTIN [Concomitant]
     Active Substance: GABAPENTIN

REACTIONS (5)
  - Acute kidney injury [Unknown]
  - Chronic kidney disease [Not Recovered/Not Resolved]
  - Renal failure [Unknown]
  - Renal injury [Unknown]
  - Rebound acid hypersecretion [Unknown]
